FAERS Safety Report 4508901-0 (Version None)
Quarter: 2004Q4

REPORT INFORMATION
  Report Type: 
  Country: None (occurrence: None)
  Receive Date: 20041122
  Receipt Date: 20041104
  Transmission Date: 20050328
  Serious: Yes (Hospitalization)
  Sender: FDA-Public Use
  Company Number: 2004VX000903

PATIENT
  Age: 73 Year
  Sex: Female

DRUGS (1)
  1. FLUOROURACIL [Suspect]
     Indication: CONJUNCTIVAL NEOPLASM
     Dosage: 4 TIMES A DAY; TOPICAL
     Route: 061
     Dates: start: 20031028

REACTIONS (4)
  - CONJUNCTIVAL EROSION [None]
  - CORNEAL EPITHELIUM DEFECT [None]
  - MEDICATION ERROR [None]
  - OCULAR NEOPLASM [None]
